FAERS Safety Report 8822598 (Version 1)
Quarter: 2012Q4

REPORT INFORMATION
  Report Type: 
  Country: FR (occurrence: FR)
  Receive Date: 20121003
  Receipt Date: 20121003
  Transmission Date: 20130627
  Serious: Yes (Disabling)
  Sender: FDA-Public Use
  Company Number: FR-ACTELION-A-CH2012-59423

PATIENT
  Age: 42 Year
  Sex: Female
  Weight: 58 kg

DRUGS (7)
  1. TRACLEER [Suspect]
     Indication: DIGITAL ULCER
     Dosage: 125 mg, bid
     Route: 048
     Dates: end: 20111215
  2. TRACLEER [Suspect]
     Dosage: 62.5 mg, od
     Route: 048
     Dates: start: 201108
  3. TRACLEER [Suspect]
     Dosage: 62.5 mg, bid
     Route: 048
  4. NIFEDIPINE [Concomitant]
     Dosage: UNK
     Dates: start: 2009
  5. BIPROFENID [Concomitant]
     Dosage: UNK
     Dates: start: 2009
  6. ACUPAN [Concomitant]
     Dosage: UNK
     Dates: start: 2009
  7. INEXIUM [Concomitant]
     Dosage: UNK
     Dates: start: 2009

REACTIONS (2)
  - Arthralgia [Recovered/Resolved]
  - Tenosynovitis [Recovered/Resolved]
